FAERS Safety Report 7981674-5 (Version None)
Quarter: 2011Q4

REPORT INFORMATION
  Report Type: 
  Country: None (occurrence: None)
  Receive Date: 20111215
  Receipt Date: 20111207
  Transmission Date: 20120403
  Serious: Yes (Hospitalization, Other)
  Sender: FDA-Public Use
  Company Number: US-JNJFOC-20111203479

PATIENT
  Sex: Female
  Weight: 58.97 kg

DRUGS (9)
  1. DURAGESIC-100 [Suspect]
     Dosage: 100 UG/HR AND 50 UG/HR
     Route: 062
     Dates: start: 20110101
  2. ADVAIR DISKUS 100/50 [Concomitant]
     Dosage: 1 PUFF TWICE DAILY/ORAL INHALANT
     Route: 055
     Dates: start: 19950101
  3. PERCOCET [Concomitant]
     Indication: BREAKTHROUGH PAIN
     Dosage: 10-650MG/ONCE EVERY 6 HOURS
     Route: 065
     Dates: start: 20010101
  4. PREDNISONE [Concomitant]
     Indication: INFLAMMATION
     Route: 048
     Dates: start: 19950101
  5. DURAGESIC-100 [Suspect]
     Indication: PAIN
     Dosage: 100 MCG/HR PLUS 50 MCG/HR /1 IN 72 HOURS
     Route: 062
     Dates: start: 20010101
  6. DURAGESIC-100 [Suspect]
     Dosage: 100 UG/HR AND 50 UG/HR/
     Route: 062
     Dates: end: 20110101
  7. FENTANYL CITRATE [Suspect]
     Indication: PAIN
     Dosage: 100 UG/HR AND 50 UG/HR
     Route: 062
     Dates: start: 20110101, end: 20110101
  8. SOLU-MEDROL [Suspect]
     Indication: PRODUCT USED FOR UNKNOWN INDICATION
     Route: 065
     Dates: start: 20010101, end: 20111101
  9. OXYCONTIN [Concomitant]
     Route: 065
     Dates: start: 20010101, end: 20100101

REACTIONS (5)
  - DRUG INEFFECTIVE [None]
  - HIP ARTHROPLASTY [None]
  - BONE DISORDER [None]
  - MULTIPLE SCLEROSIS [None]
  - CARDIAC DISORDER [None]
